FAERS Safety Report 6783270-4 (Version None)
Quarter: 2010Q2

REPORT INFORMATION
  Report Type: 
  Country: None (occurrence: None)
  Receive Date: 20100622
  Receipt Date: 20100611
  Transmission Date: 20101027
  Serious: Yes (Hospitalization)
  Sender: FDA-Public Use
  Company Number: US-ELI_LILLY_AND_COMPANY-US201006003289

PATIENT
  Sex: Female
  Weight: 102.4 kg

DRUGS (8)
  1. BYETTA [Suspect]
     Indication: TYPE 2 DIABETES MELLITUS
     Dosage: 5 UG, 2/D
     Route: 058
     Dates: start: 20080101
  2. BYETTA [Suspect]
     Dosage: 10 UG, 2/D
     Route: 058
  3. AVANDIA [Concomitant]
     Indication: TYPE 2 DIABETES MELLITUS
     Dosage: 4 MG, 2/D
  4. GLIPIZIDE [Concomitant]
     Indication: TYPE 2 DIABETES MELLITUS
     Dosage: 10 MG, 2/D
  5. METFORMIN                          /00082701/ [Concomitant]
     Indication: TYPE 2 DIABETES MELLITUS
     Dosage: 1000 MG, EACH EVENING
  6. XANAX [Concomitant]
     Dosage: 1 D/F, UNK
  7. VITAMIN B-12 [Concomitant]
     Dosage: 100 MG, DAILY (1/D)
  8. DICLOFENAC POTASSIUM [Concomitant]
     Dosage: 50 MG, 2/D

REACTIONS (8)
  - ANAEMIA [None]
  - BALANCE DISORDER [None]
  - BLOOD GLUCOSE INCREASED [None]
  - CARDIAC DISORDER [None]
  - DRUG DOSE OMISSION [None]
  - GAIT DISTURBANCE [None]
  - OEDEMA PERIPHERAL [None]
  - WEIGHT DECREASED [None]
